FAERS Safety Report 5322007-2 (Version None)
Quarter: 2007Q2

REPORT INFORMATION
  Report Type: 
  Country: None (occurrence: None)
  Receive Date: 20070508
  Receipt Date: 20070508
  Transmission Date: 20071010
  Serious: Yes (Disabling, Other)
  Sender: FDA-Public Use
  Company Number: None

PATIENT
  Age: 16 Year
  Sex: Male
  Weight: 81.6475 kg

DRUGS (3)
  1. COZAAR [Suspect]
     Indication: CARDIAC DISORDER
     Dosage: ONE DAY PO
     Route: 048
     Dates: start: 20060804
  2. COZAAR [Suspect]
     Indication: HYPERTENSION
     Dosage: ONE DAY PO
     Route: 048
     Dates: start: 20060804
  3. COZAAR [Suspect]
     Indication: NEPHROPATHY
     Dosage: ONE DAY PO
     Route: 048
     Dates: start: 20060804

REACTIONS (9)
  - ARTHRITIS [None]
  - INJURY [None]
  - NO THERAPEUTIC RESPONSE [None]
  - PHOTOSENSITIVITY REACTION [None]
  - PSORIASIS [None]
  - SCOLIOSIS [None]
  - SKIN ATROPHY [None]
  - SKIN CANCER [None]
  - SKIN DISCOLOURATION [None]
